FAERS Safety Report 5240315-0 (Version None)
Quarter: 2007Q1

REPORT INFORMATION
  Report Type: 
  Country: None (occurrence: None)
  Receive Date: 20061208
  Receipt Date: 20050411
  Transmission Date: 20070707
  Serious: Yes (Other)
  Sender: FDA-Public Use
  Company Number: 2005UW05557

PATIENT
  Age: 46 Year
  Sex: Female
  Weight: 52.163 kg

DRUGS (7)
  1. CRESTOR [Suspect]
     Indication: BLOOD CHOLESTEROL INCREASED
     Dosage: 10 MG PO
     Route: 048
     Dates: start: 20050407
  2. OXYCONTIN [Concomitant]
  3. SOMA [Concomitant]
  4. IMIPRAMINE [Concomitant]
  5. CLARINEX [Concomitant]
  6. XANAX [Concomitant]
  7. HERBAL SUPPLEMENTS [Concomitant]

REACTIONS (3)
  - ARTHRALGIA [None]
  - ASTHENIA [None]
  - DYSGEUSIA [None]
